FAERS Safety Report 16281459 (Version 3)
Quarter: 2019Q3

REPORT INFORMATION
  Report Type: Spontaneous
  Country: US (occurrence: US)
  Receive Date: 20190507
  Receipt Date: 20190919
  Transmission Date: 20191004
  Serious: No
  Sender: FDA-Public Use
  Company Number: US-PFIZER INC-2019111153

PATIENT
  Age: 60 Year
  Sex: Female
  Weight: 86.17 kg

DRUGS (2)
  1. LYRICA [Suspect]
     Active Substance: PREGABALIN
     Indication: MOTOR NEURONE DISEASE
     Dosage: 50 MG, UNK
     Dates: start: 201708
  2. LYRICA [Suspect]
     Active Substance: PREGABALIN
     Indication: PAIN
     Dosage: 100 MG, TWICE DAILY
     Route: 048
     Dates: start: 201708

REACTIONS (1)
  - Therapeutic product effect incomplete [Unknown]
